FAERS Safety Report 8988520 (Version 1)
Quarter: 2012Q4

REPORT INFORMATION
  Report Type: Spontaneous
  Country: US (occurrence: None)
  Receive Date: 20121224
  Receipt Date: 20121224
  Transmission Date: 20130627
  Serious: Yes (Life-Threatening, Hospitalization, Other)
  Sender: FDA-Public Use
  Company Number: None

PATIENT
  Age: 64 Year
  Sex: Female
  Weight: 192 kg

DRUGS (1)
  1. ONFI 10MG [Suspect]
     Indication: SEIZURES
     Dates: start: 20120417, end: 20120810

REACTIONS (1)
  - Death [None]
